FAERS Safety Report 7443525-7 (Version None)
Quarter: 2011Q2

REPORT INFORMATION
  Report Type: 
  Country: None (occurrence: None)
  Receive Date: 20110428
  Receipt Date: 20110325
  Transmission Date: 20111010
  Serious: Yes (Other)
  Sender: FDA-Public Use
  Company Number: US-BAYER-2011-007705

PATIENT
  Age: 28 Year
  Sex: Female
  Weight: 65.306 kg

DRUGS (27)
  1. CYMBALTA [Concomitant]
     Indication: ANXIETY
  2. BACLOFEN [Concomitant]
     Indication: PANIC ATTACK
     Dosage: UNK
     Dates: start: 20080101
  3. ZYRTEC [Concomitant]
     Dosage: UNK
     Dates: start: 20080101
  4. YASMIN [Suspect]
     Indication: PRODUCT USED FOR UNKNOWN INDICATION
     Dosage: UNK
     Route: 048
     Dates: start: 20071201, end: 20080401
  5. CLONAZEPAM [Concomitant]
     Indication: ANXIETY
  6. SERTRALINE [Concomitant]
     Indication: PANIC ATTACK
     Dosage: UNK
     Dates: start: 20070101, end: 20100101
  7. LORAZEPAM [Concomitant]
     Indication: POST-TRAUMATIC STRESS DISORDER
  8. ADVAIR DISKUS 100/50 [Concomitant]
     Dosage: UNK
     Dates: start: 20080101
  9. ANTACIDS [Concomitant]
  10. PRILOSEC [Concomitant]
     Indication: DYSPEPSIA
     Dosage: UNK
     Dates: start: 20080101
  11. CYMBALTA [Concomitant]
     Indication: PANIC ATTACK
     Dosage: UNK
     Dates: start: 20090101, end: 20090101
  12. CLONAZEPAM [Concomitant]
     Indication: PANIC ATTACK
     Dosage: UNK
     Dates: start: 20050101, end: 20100101
  13. CLONAZEPAM [Concomitant]
     Indication: POST-TRAUMATIC STRESS DISORDER
  14. BACLOFEN [Concomitant]
     Indication: ANXIETY
  15. METAMUCIL-2 [Concomitant]
     Indication: CONSTIPATION
  16. TIZANIDINE [Concomitant]
     Indication: VIITH NERVE PARALYSIS
     Dosage: UNK
     Dates: start: 20080101, end: 20100101
  17. BUSPIRONE HCL [Concomitant]
     Indication: PANIC ATTACK
     Dosage: UNK
     Dates: start: 20050101, end: 20080101
  18. BUSPIRONE HCL [Concomitant]
     Indication: POST-TRAUMATIC STRESS DISORDER
  19. SERTRALINE [Concomitant]
     Indication: POST-TRAUMATIC STRESS DISORDER
  20. BUSPIRONE HCL [Concomitant]
     Indication: ANXIETY
  21. LUNESTA [Concomitant]
     Indication: SLEEP DISORDER
     Dosage: UNK
     Dates: start: 20070101, end: 20080101
  22. BACLOFEN [Concomitant]
     Indication: POST-TRAUMATIC STRESS DISORDER
  23. CYMBALTA [Concomitant]
     Indication: POST-TRAUMATIC STRESS DISORDER
  24. LORAZEPAM [Concomitant]
     Indication: PANIC ATTACK
     Dosage: UNK
     Dates: start: 20050101, end: 20090101
  25. PRILOSEC [Concomitant]
     Indication: ABDOMINAL DISCOMFORT
  26. SERTRALINE [Concomitant]
     Indication: ANXIETY
  27. LORAZEPAM [Concomitant]
     Indication: ANXIETY

REACTIONS (10)
  - DYSPEPSIA [None]
  - CHANGE OF BOWEL HABIT [None]
  - ABDOMINAL PAIN [None]
  - ABDOMINAL DISTENSION [None]
  - NAUSEA [None]
  - ABDOMINAL PAIN UPPER [None]
  - BILIARY DYSKINESIA [None]
  - BILIARY TRACT DISORDER [None]
  - PAIN [None]
  - DIARRHOEA [None]
